FAERS Safety Report 9607498 (Version 1)
Quarter: 2013Q4

REPORT INFORMATION
  Report Type: Spontaneous
  Country: US (occurrence: None)
  Receive Date: 20131007
  Receipt Date: 20131007
  Transmission Date: 20140711
  Serious: Yes (Hospitalization)
  Sender: FDA-Public Use
  Company Number: AE13-076

PATIENT
  Sex: Female

DRUGS (4)
  1. BUTALB ITAL/ACETAMINOPHEN/CAFFEINE TABLETS [Suspect]
     Indication: MIGRAINE
     Route: 048
     Dates: start: 20131212, end: 201304
  2. OXYCONTIN [Concomitant]
  3. PERCOCET [Concomitant]
  4. ASPIRIN [Concomitant]

REACTIONS (5)
  - Abdominal pain [None]
  - Chest pain [None]
  - Vomiting [None]
  - Convulsion [None]
  - Diplopia [None]
